FAERS Safety Report 9174154 (Version 1)
Quarter: 2013Q1

REPORT INFORMATION
  Report Type: Spontaneous
  Country: US (occurrence: None)
  Receive Date: 20130318
  Receipt Date: 20130318
  Transmission Date: 20140127
  Serious: Yes (Hospitalization)
  Sender: FDA-Public Use
  Company Number: None

PATIENT
  Age: 76 Year
  Sex: Male
  Weight: 80.74 kg

DRUGS (1)
  1. DABIGATRAN [Suspect]
     Indication: ATRIAL FIBRILLATION
     Dosage: 150 MG TWICE DAILY BY MOUTH
     Route: 048

REACTIONS (4)
  - Haematochezia [None]
  - Abdominal pain [None]
  - Haemodynamic instability [None]
  - Haemoglobin decreased [None]
